FAERS Safety Report 7963590-8 (Version None)
Quarter: 2011Q4

REPORT INFORMATION
  Report Type: 
  Country: None (occurrence: None)
  Receive Date: 20111208
  Receipt Date: 20111122
  Transmission Date: 20120403
  Serious: No
  Sender: FDA-Public Use
  Company Number: US-BAYER-2011-114475

PATIENT
  Sex: Female
  Weight: 68 kg

DRUGS (9)
  1. RYTHMOL [Concomitant]
  2. SINGULAIR [Concomitant]
  3. LOSARTAN POTASSIUM AND HYDROCHLOROTHIAZIDE [Concomitant]
  4. SYNTHROID [Concomitant]
  5. ZYRTEC [Concomitant]
  6. OCUVITE [ASCORBIC ACID,RETINOL,TOCOPHEROL] [Concomitant]
  7. CALCITONIN SALMON [Concomitant]
  8. ALEVE (CAPLET) [Suspect]
     Indication: HEADACHE
     Dosage: 1 CAPLET ONCE WITH FOOD
     Route: 048
     Dates: start: 20111122
  9. CALCIUM CARBONATE [Concomitant]

REACTIONS (1)
  - HEADACHE [None]
